FAERS Safety Report 5244925-6 (Version None)
Quarter: 2007Q1

REPORT INFORMATION
  Report Type: 
  Country: None (occurrence: None)
  Receive Date: 20070221
  Receipt Date: 20070221
  Transmission Date: 20070707
  Serious: No
  Sender: FDA-Public Use
  Company Number: None

PATIENT
  Age: 80 Year
  Sex: Female
  Weight: 56.246 kg

DRUGS (2)
  1. NEVANAC [Suspect]
     Indication: INFLAMMATION
     Dosage: 0.1% 3 TIMES DAY
     Dates: start: 20070215
  2. NEVANAC [Suspect]

REACTIONS (3)
  - DRUG INEFFECTIVE [None]
  - EYE DISCHARGE [None]
  - PHARMACEUTICAL PRODUCT COMPLAINT [None]
